FAERS Safety Report 8406654-7 (Version None)
Quarter: 2012Q2

REPORT INFORMATION
  Report Type: 
  Country: None (occurrence: None)
  Receive Date: 20120604
  Receipt Date: 20120526
  Transmission Date: 20120825
  Serious: Yes (Hospitalization)
  Sender: FDA-Public Use
  Company Number: US-ASTELLAS-2012US003318

PATIENT
  Sex: Female
  Weight: 84 kg

DRUGS (12)
  1. HYDROCODONE [Concomitant]
     Indication: PAIN
     Dosage: 10 MG, PRN, UP TO FOUR TIMES A DAY
     Route: 048
  2. SOMA [Concomitant]
     Indication: NECK PAIN
  3. IBUPROFEN [Concomitant]
     Indication: PAIN
     Dosage: 800 MG, ONE TO TWO TIMES A DAY
     Route: 048
  4. METAMUCIL-2 [Concomitant]
     Indication: SUPPLEMENTATION THERAPY
     Dosage: UNK
     Route: 048
  5. VESICARE [Suspect]
     Indication: HYPERTONIC BLADDER
     Dosage: 5 MG, UID/QD
     Route: 048
  6. VESICARE [Suspect]
     Dosage: 10 MG, UID/QD
     Route: 048
  7. ADDERALL 5 [Concomitant]
     Indication: ATTENTION DEFICIT/HYPERACTIVITY DISORDER
     Dosage: 20 MG, BID
     Route: 048
  8. SOMA [Concomitant]
     Indication: MUSCLE SPASMS
     Dosage: 350 MG, PRN, ONE TO TWO TIMES A DAY AS NEEDED
     Route: 048
  9. DIAZEPAM [Concomitant]
     Indication: PANIC ATTACK
     Dosage: 10 MG, PRN, ONCE DAILY AS NEEDED
     Route: 048
  10. PROMETHAZINE [Concomitant]
     Indication: NAUSEA
     Dosage: 25 MG, PRN, EVERY SIX HOURS AS NEEDED
     Route: 048
  11. OMEPRAZOLE [Concomitant]
     Indication: UNEVALUABLE EVENT
     Dosage: 20 MG, UID/QD
     Route: 048
  12. MELATONIN [Concomitant]
     Indication: SLEEP DISORDER
     Dosage: 5 MG, QHS
     Route: 048

REACTIONS (8)
  - SOCIAL PROBLEM [None]
  - HOSPITALISATION [None]
  - FALL [None]
  - JOINT DISLOCATION [None]
  - ACCIDENT [None]
  - PERONEAL NERVE PALSY [None]
  - FOOT OPERATION [None]
  - MORTON'S NEUROMA [None]
